FAERS Safety Report 6071693-0 (Version None)
Quarter: 2009Q1

REPORT INFORMATION
  Report Type: 
  Country: None (occurrence: None)
  Receive Date: 20090209
  Receipt Date: 20090209
  Transmission Date: 20090719
  Serious: Yes (Hospitalization)
  Sender: FDA-Public Use
  Company Number: None

PATIENT
  Age: 67 Year
  Sex: Male
  Weight: 86.3 kg

DRUGS (1)
  1. MYCOPHENOLIC ACID [Suspect]
     Indication: VASCULITIS
     Dates: start: 20081104, end: 20081125

REACTIONS (1)
  - ABDOMINAL PAIN [None]
